FAERS Safety Report 14588705 (Version 1)
Quarter: 2018Q1

REPORT INFORMATION
  Report Type: Not Available
  Country: US (occurrence: US)
  Receive Date: 20180301
  Receipt Date: 20180301
  Transmission Date: 20180509
  Serious: Yes (Life-Threatening, Other)
  Sender: FDA-Public Use
  Company Number: US-C B FLEET CO INC-201802-US-000349

PATIENT
  Sex: Female

DRUGS (1)
  1. BC ARTHRITIS [Suspect]
     Active Substance: ASPIRIN\CAFFEINE
     Indication: PRODUCT USED FOR UNKNOWN INDICATION
     Route: 048

REACTIONS (4)
  - Amnesia [Unknown]
  - Apparent death [Unknown]
  - Aneurysm [Unknown]
  - Inappropriate schedule of drug administration [None]
